FAERS Safety Report 21206518 (Version 1)
Quarter: 2022Q3

REPORT INFORMATION
  Report Type: Spontaneous
  Country: US (occurrence: None)
  Receive Date: 20220811
  Receipt Date: 20220811
  Transmission Date: 20221027
  Serious: No
  Sender: FDA-Public Use
  Company Number: None

PATIENT
  Age: 37 Year
  Sex: Female
  Weight: 63.45 kg

DRUGS (9)
  1. DEXTROAMPHET SACCHARAT, AMPHET ASPARTATE, DEXTROAMPHET SULFATE AND AMP [Suspect]
     Active Substance: AMPHETAMINE ASPARTATE\AMPHETAMINE SULFATE\DEXTROAMPHETAMINE SACCHARATE\DEXTROAMPHETAMINE SULFATE
     Indication: Attention deficit hyperactivity disorder
     Dosage: OTHER QUANTITY : 2 CAPSULE(S);?
     Route: 048
     Dates: start: 20220810, end: 20220810
  2. 300 mg Bupropion XR once daily [Concomitant]
  3. 5 mg Guanfacine once daily [Concomitant]
  4. 20 mg Adderall/Generic Adderall XR once daily [Concomitant]
  5. 15 mg zinc picolinateonce daily [Concomitant]
  6. 1,000 mcg methylfolate once daily [Concomitant]
  7. 600 mg vegan Omega 3 twice daily [Concomitant]
  8. 300 mg pine bark extract once daily [Concomitant]
  9. 50 mcg Selenium 2x weekly [Concomitant]

REACTIONS (4)
  - Headache [None]
  - Lethargy [None]
  - Arrhythmia [None]
  - Balance disorder [None]

NARRATIVE: CASE EVENT DATE: 20220810
